FAERS Safety Report 6590456-0 (Version None)
Quarter: 2010Q1

REPORT INFORMATION
  Report Type: 
  Country: None (occurrence: None)
  Receive Date: 20100219
  Receipt Date: 20100218
  Transmission Date: 20100710
  Serious: Yes (Disabling)
  Sender: FDA-Public Use
  Company Number: CA-TEVA-223841USA

PATIENT
  Age: 74 Year
  Sex: Male

DRUGS (6)
  1. BICALUTAMIDE [Suspect]
     Route: 048
     Dates: start: 20091222
  2. VITALUX  ARED [Concomitant]
     Dates: start: 20060101
  3. ACETYLSALICYLIC ACID [Concomitant]
  4. CALCIUM [Concomitant]
  5. CO-DIOVAN [Concomitant]
  6. ATORVASTATIN CALCIUM [Concomitant]

REACTIONS (1)
  - MACULAR DEGENERATION [None]
